FAERS Safety Report 20441020 (Version 1)
Quarter: 2022Q1

REPORT INFORMATION
  Report Type: Spontaneous
  Country: US (occurrence: US)
  Receive Date: 20220208
  Receipt Date: 20220208
  Transmission Date: 20220423
  Serious: No
  Sender: FDA-Public Use
  Company Number: US-MMM-VCQ6MTYP

PATIENT
  Age: 48 Year
  Sex: Female

DRUGS (9)
  1. ARNUITY ELLIPTA [Suspect]
     Active Substance: FLUTICASONE FUROATE
     Indication: Asthma
     Dosage: UNK UNK, QD(100MCG)
     Dates: start: 202106
  2. ARNUITY ELLIPTA [Suspect]
     Active Substance: FLUTICASONE FUROATE
     Indication: Chest pain
     Dosage: UNK(EVERY 2 DAY)
     Dates: start: 20210613
  3. ARNUITY ELLIPTA [Suspect]
     Active Substance: FLUTICASONE FUROATE
     Indication: Back pain
  4. TYLENOL [Concomitant]
     Active Substance: ACETAMINOPHEN
     Indication: Pain
     Dosage: 2 DF(2 PILLS OF 500MG AS NEEDED)
     Dates: start: 20220106
  5. IBUPROFEN [Concomitant]
     Active Substance: IBUPROFEN
     Indication: Back pain
     Dosage: 2 DF, TID(200 MG)
     Dates: start: 20220110
  6. IBUPROFEN [Concomitant]
     Active Substance: IBUPROFEN
     Indication: Myalgia
  7. TRULICITY [Concomitant]
     Active Substance: DULAGLUTIDE
     Indication: Diabetes mellitus
     Dosage: UNK(0.75MG/0.5ML EVERY 8 DAYS)
     Dates: start: 202106
  8. TRULICITY [Concomitant]
     Active Substance: DULAGLUTIDE
     Indication: Asthma
  9. METFORMIN [Concomitant]
     Active Substance: METFORMIN HYDROCHLORIDE
     Indication: Diabetes mellitus
     Dosage: 4 DF, QD(500MG)
     Dates: start: 2015

REACTIONS (4)
  - COVID-19 [Unknown]
  - Inappropriate schedule of product administration [Unknown]
  - Product use in unapproved indication [Unknown]
  - Drug ineffective for unapproved indication [Unknown]

NARRATIVE: CASE EVENT DATE: 20210613
